FAERS Safety Report 7630029-1 (Version None)
Quarter: 2011Q3

REPORT INFORMATION
  Report Type: 
  Country: None (occurrence: None)
  Receive Date: 20110715
  Receipt Date: 20110708
  Transmission Date: 20111222
  Serious: Yes (Hospitalization, Other)
  Sender: FDA-Public Use
  Company Number: FK201101360

PATIENT
  Age: 62 Year
  Sex: Male
  Weight: 72.5 kg

DRUGS (9)
  1. LANSOPRAZOLE [Concomitant]
  2. LISINOPRIL (LISINOPRIL) (LISINOPRIL)Q [Concomitant]
  3. FERROUS SULPHATE (FERROUS SULPHATE) (FURROUS SULPHATE) [Concomitant]
  4. MIXTARD (INSULIN HUMAN0 (INSULIN HUMAN) [Concomitant]
  5. EYE DROPS (TETRYZOLINE HYDROCHLORIDE) [Concomitant]
  6. FLUOROURACIL [Suspect]
     Indication: COLORECTAL CANCER METASTATIC
     Dosage: INTRAVENIOUS (NOT OTHERWISE SPECIFIED)
     Route: 042
     Dates: start: 20110426, end: 20110428
  7. HUMALOG (INSULIN) (INSULIN) [Concomitant]
  8. SIMVASTATIN [Concomitant]
  9. IRINOTECAN (MANUFACTURER UNKNOWN) (IRINOTECAN) 9IRINOTECAN) [Suspect]
     Indication: COLORECTAL CANCER METASTATIC
     Dosage: 330 MG
     Dates: start: 20110426, end: 20110426

REACTIONS (1)
  - URINARY RETENTION [None]
